FAERS Safety Report 5907517-9 (Version None)
Quarter: 2008Q4

REPORT INFORMATION
  Report Type: 
  Country: None (occurrence: None)
  Receive Date: 20081003
  Receipt Date: 20080925
  Transmission Date: 20090506
  Serious: Yes (Hospitalization)
  Sender: FDA-Public Use
  Company Number: US-JNJFOC-20061106137

PATIENT
  Sex: Female
  Weight: 54.43 kg

DRUGS (3)
  1. ORTHO EVRA [Suspect]
     Indication: CONTRACEPTION
     Route: 062
  2. VICODIN [Concomitant]
     Indication: PAIN
  3. MACROBID [Concomitant]
     Indication: URINARY TRACT INFECTION

REACTIONS (4)
  - DEEP VEIN THROMBOSIS [None]
  - LOBAR PNEUMONIA [None]
  - PULMONARY EMBOLISM [None]
  - URINARY TRACT INFECTION [None]
